FAERS Safety Report 10754784 (Version 1)
Quarter: 2015Q1

REPORT INFORMATION
  Report Type: Not Available
  Country: IT (occurrence: IT)
  Receive Date: 20150202
  Receipt Date: 20150202
  Transmission Date: 20150721
  Serious: Yes (Other)
  Sender: FDA-Public Use
  Company Number: IT-MUNDIPHARMA DS AND PHARMACOVIGILANCE-GBR-2015-0025106

PATIENT
  Age: 85 Year
  Sex: Male

DRUGS (2)
  1. TARGIN COMPRESSA A RILASCIO PROLUNGATO CONTIENE 5MG/2,5MG [Suspect]
     Active Substance: NALOXONE HYDROCHLORIDE\OXYCODONE HYDROCHLORIDE
     Indication: BACK PAIN
     Dosage: 2 DF, DAILY
     Route: 048
     Dates: start: 20150107, end: 20150117
  2. RAMIPRIL. [Concomitant]
     Active Substance: RAMIPRIL
     Indication: HYPERTENSION

REACTIONS (4)
  - Confusional state [Recovering/Resolving]
  - Dry mouth [Recovering/Resolving]
  - Speech disorder [Recovering/Resolving]
  - Miosis [Recovered/Resolved]

NARRATIVE: CASE EVENT DATE: 20150117
